FAERS Safety Report 14504739 (Version 1)
Quarter: 2018Q1

REPORT INFORMATION
  Report Type: Spontaneous
  Country: US (occurrence: US)
  Receive Date: 20180208
  Receipt Date: 20180208
  Transmission Date: 20180509
  Serious: No
  Sender: FDA-Public Use
  Company Number: US-JNJFOC-20180110527

PATIENT
  Age: 71 Year
  Sex: Male
  Weight: 68.04 kg

DRUGS (3)
  1. LIPITOR [Concomitant]
     Active Substance: ATORVASTATIN CALCIUM
     Indication: BLOOD CHOLESTEROL INCREASED
     Route: 065
  2. LISINOPRIL. [Concomitant]
     Active Substance: LISINOPRIL
     Indication: HYPERTENSION
     Route: 065
  3. TYLENOL EXTRA STRENGTH [Suspect]
     Active Substance: ACETAMINOPHEN
     Indication: ARTHRITIS
     Dosage: TOOK 1 CAPLET 3 TIMES IN ONE DAY
     Route: 048
     Dates: start: 201801, end: 201801

REACTIONS (3)
  - Incorrect dose administered [Unknown]
  - Product formulation issue [Unknown]
  - Product storage error [Unknown]

NARRATIVE: CASE EVENT DATE: 201801
